FAERS Safety Report 6620215-1 (Version None)
Quarter: 2010Q1

REPORT INFORMATION
  Report Type: 
  Country: None (occurrence: None)
  Receive Date: 20100304
  Receipt Date: 20100220
  Transmission Date: 20100710
  Serious: No
  Sender: FDA-Public Use
  Company Number: 2010AP000348

PATIENT
  Sex: Female

DRUGS (4)
  1. PAROXETINE HYDROCHLORIDE [Suspect]
     Indication: DEPRESSION
     Dosage: 10 MG
  2. AMITRIPTYLINE HCL [Concomitant]
  3. MAPROTILINE [Concomitant]
  4. BUPROPION HCL [Concomitant]

REACTIONS (10)
  - ANDROGEN DEFICIENCY [None]
  - ANORGASMIA [None]
  - BIPOLAR II DISORDER [None]
  - DRUG WITHDRAWAL SYNDROME [None]
  - FEMALE SEXUAL AROUSAL DISORDER [None]
  - GENITAL DISCOMFORT [None]
  - GENITAL PAIN [None]
  - NO THERAPEUTIC RESPONSE [None]
  - SUICIDAL IDEATION [None]
  - URINARY TRACT DISORDER [None]
